FAERS Safety Report 4399606-8 (Version None)
Quarter: 2004Q2

REPORT INFORMATION
  Report Type: 
  Country: None (occurrence: None)
  Receive Date: 20040621
  Receipt Date: 20040202
  Transmission Date: 20050107
  Serious: Yes (Other)
  Sender: FDA-Public Use
  Company Number: USA-2004-0012793

PATIENT
  Age: 43 Year
  Sex: Female
  Weight: 54.4 kg

DRUGS (7)
  1. OXYCONTIN [Suspect]
     Indication: PAIN
     Dosage: 20 MG , SEE TEXT, ORAL
     Route: 048
  2. ATENOLOL [Concomitant]
  3. ADVAIR DISKUS 100/50 [Concomitant]
  4. ALBUTEROL [Concomitant]
  5. FLOVENT [Concomitant]
  6. ATROVENT [Concomitant]
  7. PREMARIN [Concomitant]

REACTIONS (1)
  - DRUG ABUSER [None]
